FAERS Safety Report 6876529-3 (Version None)
Quarter: 2010Q3

REPORT INFORMATION
  Report Type: 
  Country: None (occurrence: None)
  Receive Date: 20100727
  Receipt Date: 20100719
  Transmission Date: 20110219
  Serious: Yes (Other)
  Sender: FDA-Public Use
  Company Number: US-BRACCO-003823

PATIENT
  Sex: Female

DRUGS (2)
  1. ISOVUE-370 [Suspect]
     Route: 061
     Dates: start: 20091130, end: 20091130
  2. ORAL CONTRACEPTIVE NOS [Concomitant]

REACTIONS (3)
  - EYE INJURY [None]
  - IRITIS [None]
  - RETINAL OEDEMA [None]
